FAERS Safety Report 7331176-4 (Version None)
Quarter: 2011Q1

REPORT INFORMATION
  Report Type: 
  Country: None (occurrence: None)
  Receive Date: 20110304
  Receipt Date: 20110223
  Transmission Date: 20110831
  Serious: Yes (Other)
  Sender: FDA-Public Use
  Company Number: FR-JNJFOC-20110208601

PATIENT
  Age: 33 Year
  Sex: Male

DRUGS (7)
  1. RISPERDAL CONSTA [Suspect]
     Indication: MANIA
     Route: 030
  2. LOXAPINE HCL [Suspect]
     Indication: MANIA
     Route: 048
  3. LOXAPINE HCL [Suspect]
     Route: 048
  4. LOXAPINE HCL [Suspect]
     Indication: BIPOLAR DISORDER
     Route: 048
  5. LOXAPINE HCL [Suspect]
     Route: 048
  6. RISPERDAL CONSTA [Suspect]
     Indication: BIPOLAR DISORDER
     Route: 030
  7. RIVOTRIL [Concomitant]
     Route: 048

REACTIONS (2)
  - RABBIT SYNDROME [None]
  - TARDIVE DYSKINESIA [None]
